FAERS Safety Report 23811617 (Version 1)
Quarter: 2024Q2

REPORT INFORMATION
  Report Type: Spontaneous
  Country: PL (occurrence: PL)
  Receive Date: 20240503
  Receipt Date: 20240503
  Transmission Date: 20240716
  Serious: Yes (Death, Hospitalization, Other)
  Sender: FDA-Public Use
  Company Number: PL-002147023-NVSC2024PL082590

PATIENT
  Age: 73 Year
  Sex: Male

DRUGS (4)
  1. POLATUZUMAB VEDOTIN [Suspect]
     Active Substance: POLATUZUMAB VEDOTIN
     Indication: Product used for unknown indication
     Route: 065
     Dates: start: 20230330
  2. ASCIMINIB [Suspect]
     Active Substance: ASCIMINIB
     Indication: Acute lymphocytic leukaemia
     Route: 065
     Dates: start: 20230606
  3. ASCIMINIB [Suspect]
     Active Substance: ASCIMINIB
     Indication: Chronic myeloid leukaemia
  4. CYCLOPHOSPHAMIDE [Concomitant]
     Active Substance: CYCLOPHOSPHAMIDE
     Indication: Product used for unknown indication
     Dosage: UNK

REACTIONS (12)
  - Neoplasm progression [Unknown]
  - Hypogammaglobulinaemia [Unknown]
  - Malignant neoplasm progression [Fatal]
  - Febrile neutropenia [Unknown]
  - Infection [Unknown]
  - Monoparesis [Recovering/Resolving]
  - Acute lymphocytic leukaemia [Fatal]
  - Thrombocytopenia [Unknown]
  - Hyperaesthesia [Unknown]
  - Neuralgia [Recovering/Resolving]
  - Bone lesion [Unknown]
  - Oedema peripheral [Unknown]

NARRATIVE: CASE EVENT DATE: 20230810
